FAERS Safety Report 9885092 (Version 2)
Quarter: 2014Q1

REPORT INFORMATION
  Report Type: Report from Study
  Country: US (occurrence: US)
  Receive Date: 20140210
  Receipt Date: 20140303
  Transmission Date: 20141002
  Serious: Yes (Hospitalization)
  Sender: FDA-Public Use
  Company Number: US-JNJFOC-20140118882

PATIENT
  Age: 42 Year
  Sex: Male
  Weight: 82.1 kg

DRUGS (3)
  1. USTEKINUMAB [Suspect]
     Indication: PSORIASIS
     Route: 058
     Dates: start: 201007, end: 201106
  2. TACLONEX [Concomitant]
     Route: 065
  3. METHOTREXATE [Concomitant]
     Route: 065

REACTIONS (2)
  - Gastroenteritis [Recovered/Resolved]
  - Dehydration [Recovered/Resolved]
